FAERS Safety Report 4368655-8 (Version None)
Quarter: 2004Q2

REPORT INFORMATION
  Report Type: 
  Country: None (occurrence: None)
  Receive Date: 20040528
  Receipt Date: 20040515
  Transmission Date: 20050107
  Serious: Yes (Death, Hospitalization)
  Sender: FDA-Public Use
  Company Number: JP-JNJFOC-20040104296

PATIENT
  Age: 78 Year
  Sex: Female
  Weight: 39 kg

DRUGS (18)
  1. REMICADE [Suspect]
     Indication: RHEUMATOID ARTHRITIS
     Dosage: 3 MG/KG, 1 IN 1 AS NECESSARY, INTRAVENOUS DRIP
     Route: 041
     Dates: start: 20031105, end: 20031105
  2. REMICADE [Suspect]
     Indication: RHEUMATOID ARTHRITIS
     Dosage: 3 MG/KG, 1 IN 1 AS NECESSARY, INTRAVENOUS DRIP
     Route: 041
     Dates: start: 20031119, end: 20031119
  3. INFLUENZA VACCINE (INFLUENZA VACCINE) INJECTION [Suspect]
     Indication: IMMUNISATION
     Dosage: 0.5 DOSE (S), 1 IN 1 AS NECESSARY, SUBCUTANEOUS
     Route: 058
     Dates: start: 20031128
  4. PREDNISOLONE [Suspect]
     Indication: RHEUMATOID ARTHRITIS
     Dosage: SEE IMAGE ORAL
     Route: 048
     Dates: end: 20031119
  5. PREDNISOLONE [Suspect]
     Indication: RHEUMATOID ARTHRITIS
     Dosage: SEE IMAGE ORAL
     Route: 048
     Dates: start: 20031120, end: 20031126
  6. PREDNISOLONE [Suspect]
     Indication: RHEUMATOID ARTHRITIS
     Dosage: SEE IMAGE ORAL
     Route: 048
     Dates: start: 20031127, end: 20031219
  7. RHEUMATREX [Suspect]
     Indication: RHEUMATOID ARTHRITIS
     Dosage: 6 MG, IN 1 WEEK, ORAL
     Route: 048
     Dates: start: 20030311, end: 20031209
  8. PREDNISOLONE [Concomitant]
  9. INFREE S (INDOMETACIN) TABLETS [Concomitant]
  10. LEUCOVORIN (FOLINC ACID) TABLETS [Concomitant]
  11. TAKEPRON (LANSOPRAZOLE) TABLETS [Concomitant]
  12. CYTOTEC (MISOPROSTOL) TABLETS [Concomitant]
  13. GLAKAY (MENATETRENONE) CAPSULES [Concomitant]
  14. DEPROMEL (FLUVOXAMINE) TABLETS [Concomitant]
  15. DORAL [Concomitant]
  16. LASIX [Concomitant]
  17. METHYCOBAL (MECOBALAMIN) TABLETS [Concomitant]
  18. ALDACTONE A (SPIRONOLACTONE) TABLETS [Concomitant]

REACTIONS (13)
  - ANAEMIA [None]
  - BLOOD CREATININE DECREASED [None]
  - BLOOD GLUCOSE INCREASED [None]
  - CONTUSION [None]
  - DRUG INTERACTION [None]
  - FALL [None]
  - FEMUR FRACTURE [None]
  - GAMMA-GLUTAMYLTRANSFERASE INCREASED [None]
  - HEAD INJURY [None]
  - HYPERCAPNIA [None]
  - INTERSTITIAL LUNG DISEASE [None]
  - MYCOBACTERIUM AVIUM COMPLEX INFECTION [None]
  - OXYGEN SATURATION DECREASED [None]
